FAERS Safety Report 6215987-4 (Version None)
Quarter: 2009Q2

REPORT INFORMATION
  Report Type: 
  Country: None (occurrence: None)
  Receive Date: 20090605
  Receipt Date: 20090603
  Transmission Date: 20091009
  Serious: Yes (Hospitalization)
  Sender: FDA-Public Use
  Company Number: US-BRISTOL-MYERS SQUIBB COMPANY-14648422

PATIENT
  Age: 53 Year
  Sex: Male
  Weight: 94 kg

DRUGS (2)
  1. CISPLATIN [Suspect]
     Indication: PHARYNGEAL CANCER STAGE UNSPECIFIED
     Dosage: LAST DOSE ON 11AUG08 TOTAL COURSES:2
     Dates: start: 20080721, end: 20080811
  2. RADIATION THERAPY [Suspect]
     Indication: PHARYNGEAL CANCER STAGE UNSPECIFIED
     Dosage: 1DF=70GY NO.OF FRACTIONS:35 NO.OF ELASPED DAYS:43 TOTAL COURSES:2
     Dates: start: 20080721, end: 20080829

REACTIONS (5)
  - DEHYDRATION [None]
  - DIZZINESS [None]
  - DYSPHAGIA [None]
  - PAROTITIS [None]
  - RENAL FAILURE [None]
